FAERS Safety Report 10094426 (Version 1)
Quarter: 2014Q2

REPORT INFORMATION
  Report Type: Spontaneous
  Country: US (occurrence: US)
  Receive Date: 20140422
  Receipt Date: 20140422
  Transmission Date: 20141212
  Serious: No
  Sender: FDA-Public Use
  Company Number: US-B.I. PHARMACEUTICALS,INC./RIDGEFIELD-2014-BI-16517BP

PATIENT
  Age: 84 Year
  Sex: Female
  Weight: 95 kg

DRUGS (1)
  1. DULCO EASE PINK STOOL SOFTENER [Suspect]
     Indication: CONSTIPATION
     Dosage: 300 MG
     Route: 048
     Dates: start: 20140405, end: 20140409

REACTIONS (1)
  - Drug ineffective [Recovered/Resolved]
